FAERS Safety Report 14010506 (Version 3)
Quarter: 2017Q4

REPORT INFORMATION
  Report Type: Spontaneous
  Country: AR (occurrence: AR)
  Receive Date: 20170926
  Receipt Date: 20171005
  Transmission Date: 20180321
  Serious: Yes (Other)
  Sender: FDA-Public Use
  Company Number: AR-009507513-1709ARG011558

PATIENT
  Age: 19 Year
  Sex: Female
  Weight: 62 kg

DRUGS (1)
  1. IMPLANON [Suspect]
     Active Substance: ETONOGESTREL
     Indication: CONTRACEPTION
     Dosage: 68 MG, UNK
     Route: 059
     Dates: start: 20170803, end: 20170911

REACTIONS (3)
  - Implant site infection [Unknown]
  - Implant site necrosis [Recovering/Resolving]
  - Vaginal haemorrhage [Unknown]

NARRATIVE: CASE EVENT DATE: 2017
